FAERS Safety Report 7609212-7 (Version None)
Quarter: 2011Q3

REPORT INFORMATION
  Report Type: 
  Country: None (occurrence: None)
  Receive Date: 20110714
  Receipt Date: 20110706
  Transmission Date: 20111222
  Serious: Yes (Other)
  Sender: FDA-Public Use
  Company Number: FR-GENENTECH-321249

PATIENT
  Age: 69 Year
  Sex: Female

DRUGS (7)
  1. LORAZEPAM [Concomitant]
     Indication: PRODUCT USED FOR UNKNOWN INDICATION
     Dosage: UNK
  2. RITUXAN [Suspect]
     Indication: LYMPHOMA
     Dosage: 625 MG, UNK
     Route: 042
     Dates: start: 20100901, end: 20110509
  3. TIORFAN [Concomitant]
     Indication: PRODUCT USED FOR UNKNOWN INDICATION
     Dosage: UNK
  4. CYCLOPHOSPHAMIDE [Concomitant]
     Indication: LYMPHOMA
     Dosage: UNK
     Route: 042
     Dates: start: 20100901
  5. PREDNISOLONE [Concomitant]
     Indication: LYMPHOMA
     Dosage: UNK
     Dates: start: 20100901
  6. MONUROL [Concomitant]
     Indication: PRODUCT USED FOR UNKNOWN INDICATION
     Dosage: UNK
  7. VINCRISTINE [Concomitant]
     Indication: LYMPHOMA
     Dosage: UNK
     Route: 042
     Dates: start: 20100901

REACTIONS (1)
  - AGRANULOCYTOSIS [None]
